FAERS Safety Report 8802691 (Version 1)
Quarter: 2012Q4

REPORT INFORMATION
  Report Type: 
  Country: US (occurrence: US)
  Receive Date: 20120921
  Receipt Date: 20120921
  Transmission Date: 20130627
  Serious: Yes (Other)
  Sender: FDA-Public Use
  Company Number: US-ELI_LILLY_AND_COMPANY-US201209003927

PATIENT
  Sex: Female

DRUGS (2)
  1. HUMULIN 30% REGULAR, 70% NPH [Suspect]
     Indication: DIABETES MELLITUS
     Dosage: 50 u, each morning
  2. HUMULIN 30% REGULAR, 70% NPH [Suspect]
     Dosage: 40 u, each evening

REACTIONS (5)
  - Peroneal nerve palsy [Not Recovered/Not Resolved]
  - Cataract [Recovered/Resolved]
  - Visual impairment [Recovered/Resolved]
  - Weight fluctuation [Unknown]
  - Incorrect storage of drug [Recovered/Resolved]
